FAERS Safety Report 16712222 (Version 1)
Quarter: 2019Q3

REPORT INFORMATION
  Report Type: Spontaneous
  Country: GB (occurrence: GB)
  Receive Date: 20190816
  Receipt Date: 20190816
  Transmission Date: 20191004
  Serious: Yes (Hospitalization, Disabling, Other)
  Sender: FDA-Public Use
  Company Number: GB-ELI_LILLY_AND_COMPANY-GB201907008420

PATIENT
  Age: 49 Year
  Sex: Female
  Weight: 50 kg

DRUGS (10)
  1. PLATINUM [Suspect]
     Active Substance: PLATINUM
     Indication: NON-SMALL CELL LUNG CANCER
     Dosage: UNK, UNKNOWN
     Route: 065
  2. KEYTRUDA [Suspect]
     Active Substance: PEMBROLIZUMAB
     Indication: LUNG ADENOCARCINOMA
  3. CASSIA SENNA [Concomitant]
     Active Substance: HERBALS\SENNOSIDES
     Dosage: 2 DOSAGE FORM, DAILY
     Route: 048
     Dates: start: 201901
  4. FILGRASTIM [Concomitant]
     Active Substance: FILGRASTIM
     Dosage: 300 DOSAGE FORM, OTHER
     Route: 058
     Dates: start: 201901, end: 201904
  5. CIPROFLOXACIN. [Concomitant]
     Active Substance: CIPROFLOXACIN
     Dosage: 500 MG, OTHER
     Route: 048
     Dates: start: 201901, end: 201904
  6. PEMETREXED. [Suspect]
     Active Substance: PEMETREXED
     Indication: NON-SMALL CELL LUNG CANCER
     Dosage: 800 MG, CYCLICAL
     Route: 042
     Dates: start: 20190124, end: 20190404
  7. PEMETREXED. [Suspect]
     Active Substance: PEMETREXED
     Indication: LUNG ADENOCARCINOMA
  8. CARBOPLATIN. [Suspect]
     Active Substance: CARBOPLATIN
     Indication: LUNG ADENOCARCINOMA
     Dosage: UNK, CYCLICAL
     Route: 042
     Dates: start: 20190124, end: 20190404
  9. FOLIC ACID. [Concomitant]
     Active Substance: FOLIC ACID
     Indication: LUNG ADENOCARCINOMA
     Dosage: UNK, UNKNOWN
     Route: 048
     Dates: start: 201901, end: 201904
  10. KEYTRUDA [Suspect]
     Active Substance: PEMBROLIZUMAB
     Indication: NON-SMALL CELL LUNG CANCER
     Dosage: 200 MG, OTHER
     Route: 042
     Dates: start: 20190124, end: 20190307

REACTIONS (8)
  - Malaise [Unknown]
  - Pneumonitis [Recovered/Resolved]
  - Off label use [Unknown]
  - Dyspnoea [Recovered/Resolved]
  - Tubulointerstitial nephritis [Unknown]
  - Fatigue [Unknown]
  - Renal tubular injury [Unknown]
  - Blood creatinine increased [Not Recovered/Not Resolved]
